FAERS Safety Report 5730648-3 (Version None)
Quarter: 2008Q2

REPORT INFORMATION
  Report Type: 
  Country: None (occurrence: None)
  Receive Date: 20080502
  Receipt Date: 20080428
  Transmission Date: 20081010
  Serious: Yes (Hospitalization)
  Sender: FDA-Public Use
  Company Number: LTI2008A00127

PATIENT
  Age: 63 Year
  Sex: Male
  Weight: 79 kg

DRUGS (5)
  1. ENANTONE LP      ( LEUPROLIDE ACETATE) (INJECTION) [Suspect]
     Indication: PROSTATE CANCER
     Dosage: 3.75 MG (3.75 MG, 1 IN 1 M) INJECTION
     Dates: start: 20080305, end: 20080305
  2. SUTENT [Suspect]
     Dosage: 37.5 MG (1 IN 1 D); 25 MG (25 MG,1 IN 1 D) ORAL
     Route: 048
     Dates: start: 20080222, end: 20080312
  3. SUTENT [Suspect]
     Dosage: 37.5 MG (1 IN 1 D); 25 MG (25 MG,1 IN 1 D) ORAL
     Route: 048
     Dates: start: 20080403
  4. CASODEX [Suspect]
     Indication: PROSTATE CANCER
     Dosage: 50 MCG (50 MCG, 1 IN 1 D) ORAL
     Route: 048
     Dates: start: 20080305, end: 20080305
  5. AMOXICILLIN [Concomitant]

REACTIONS (2)
  - CHOLESTASIS [None]
  - CYTOLYTIC HEPATITIS [None]
